FAERS Safety Report 10045799 (Version 1)
Quarter: 2014Q1

REPORT INFORMATION
  Report Type: Spontaneous
  Country: SA (occurrence: SA)
  Receive Date: 20140328
  Receipt Date: 20140328
  Transmission Date: 20141002
  Serious: Yes (Death, Hospitalization, Other)
  Sender: FDA-Public Use
  Company Number: SA-009507513-1403SAU012825

PATIENT
  Age: 53 Year
  Sex: Male

DRUGS (1)
  1. BCG LIVE [Suspect]
     Indication: BLADDER CANCER
     Dosage: UNK
     Route: 043
     Dates: start: 20120526, end: 20120526

REACTIONS (4)
  - Sepsis [Fatal]
  - Respiratory distress [Unknown]
  - Urethral haemorrhage [Unknown]
  - Haematuria [Unknown]
